FAERS Safety Report 9109708 (Version 1)
Quarter: 2013Q1

REPORT INFORMATION
  Report Type: Report from Study
  Country: AR (occurrence: AR)
  Receive Date: 20130222
  Receipt Date: 20130222
  Transmission Date: 20140127
  Serious: Yes (Death, Hospitalization)
  Sender: FDA-Public Use
  Company Number: AR-BRISTOL-MYERS SQUIBB COMPANY-15782154

PATIENT
  Age: 70 Year
  Sex: Male

DRUGS (7)
  1. IPILIMUMAB [Suspect]
     Indication: PROSTATE CANCER
     Dosage: NO OF COURSES: 3
     Route: 042
     Dates: start: 20110330, end: 20110511
  2. ZOLEDRONIC ACID [Concomitant]
     Dates: start: 201101
  3. LEUPROLIDE [Concomitant]
     Dates: start: 200708, end: 20110228
  4. GLIMEPIRIDE [Concomitant]
     Dates: start: 200902
  5. METFORMIN [Concomitant]
     Dates: start: 200902
  6. OMEPRAZOLE [Concomitant]
     Dates: start: 20110511
  7. GOSERELIN ACETATE [Concomitant]
     Dates: start: 20110330

REACTIONS (4)
  - Cardio-respiratory arrest [Fatal]
  - Pneumonia [Fatal]
  - Abdominal distension [Recovered/Resolved]
  - Fatigue [Recovered/Resolved]
